FAERS Safety Report 8888592 (Version 3)
Quarter: 2012Q4

REPORT INFORMATION
  Report Type: 
  Country: US (occurrence: US)
  Receive Date: 20121106
  Receipt Date: 20121218
  Transmission Date: 20130627
  Serious: Yes (Hospitalization)
  Sender: FDA-Public Use
  Company Number: US-PFIZER INC-2012273810

PATIENT
  Age: 62 Year
  Sex: Female

DRUGS (1)
  1. INLYTA [Suspect]
     Indication: RENAL CANCER
     Dosage: 5 mg (1 tablet), 2x/day
     Route: 048
     Dates: start: 20120614

REACTIONS (2)
  - Impaired healing [Unknown]
  - Pain in extremity [Recovered/Resolved]
